FAERS Safety Report 9659277 (Version 1)
Quarter: 2013Q4

REPORT INFORMATION
  Report Type: Spontaneous
  Country: GB (occurrence: GB)
  Receive Date: 20131031
  Receipt Date: 20131031
  Transmission Date: 20140711
  Serious: Yes (Other)
  Sender: FDA-Public Use
  Company Number: GB-009507513-1310GBR012464

PATIENT
  Sex: Male

DRUGS (6)
  1. PROSCAR 5 MG FILM-COATED TABLETS [Suspect]
     Indication: BENIGN PROSTATIC HYPERPLASIA
     Dosage: 5 MG, QD
     Route: 048
     Dates: start: 1993
  2. TAMSULOSIN HYDROCHLORIDE [Concomitant]
  3. AMILORIDE [Concomitant]
  4. ATENOLOL [Concomitant]
  5. NIFEDIPINE [Concomitant]
  6. SIMVASTATIN [Concomitant]
     Route: 048

REACTIONS (2)
  - Oesophageal carcinoma [Unknown]
  - Dysphagia [Unknown]
